FAERS Safety Report 4430766-6 (Version None)
Quarter: 2004Q3

REPORT INFORMATION
  Report Type: 
  Country: None (occurrence: None)
  Receive Date: 20040818
  Receipt Date: 20040802
  Transmission Date: 20050211
  Serious: Yes (Hospitalization)
  Sender: FDA-Public Use
  Company Number: FR_040804561

PATIENT
  Age: 83 Year
  Sex: Male
  Weight: 87 kg

DRUGS (6)
  1. HUMALOG [Suspect]
     Indication: DIABETES MELLITUS INSULIN-DEPENDENT
  2. ALDACTONE [Concomitant]
  3. CORDARONE [Concomitant]
  4. PLAVIX [Concomitant]
  5. LASIX [Concomitant]
  6. RAMIPRIL [Concomitant]

REACTIONS (4)
  - HYPOGLYCAEMIA [None]
  - HYPOTENSION [None]
  - MALAISE [None]
  - VERTIGO [None]
